FAERS Safety Report 15616646 (Version 1)
Quarter: 2018Q4

REPORT INFORMATION
  Report Type: Spontaneous
  Country: US (occurrence: US)
  Receive Date: 20181109
  Receipt Date: 20181109
  Transmission Date: 20190205
  Serious: Yes (Life-Threatening, Hospitalization)
  Sender: FDA-Public Use
  Company Number: None

PATIENT
  Age: 65 Year
  Sex: Female

DRUGS (2)
  1. GLEEVEC [Suspect]
     Active Substance: IMATINIB MESYLATE
     Indication: CHRONIC MYELOID LEUKAEMIA
     Route: 048
  2. LOSARTAN 100 MG [Concomitant]
     Active Substance: LOSARTAN

REACTIONS (2)
  - Faeces discoloured [None]
  - Product dose omission [None]

NARRATIVE: CASE EVENT DATE: 20181031
